FAERS Safety Report 18058621 (Version 2)
Quarter: 2020Q3

REPORT INFORMATION
  Report Type: Spontaneous
  Country: US (occurrence: US)
  Receive Date: 20200723
  Receipt Date: 20200729
  Transmission Date: 20201103
  Serious: Yes (Hospitalization, Other)
  Sender: FDA-Public Use
  Company Number: US-HIKMA PHARMACEUTICALS USA INC.-US-H14001-20-03363

PATIENT
  Age: 47 Year
  Sex: Male

DRUGS (7)
  1. TICAGRELOR. [Concomitant]
     Active Substance: TICAGRELOR
     Indication: CARDIAC FAILURE
     Route: 065
  2. HEPARIN [Suspect]
     Active Substance: HEPARIN SODIUM
     Dosage: HEPARIN (U/KG/H): 12?15
     Route: 065
  3. DEXTROSE. [Concomitant]
     Active Substance: DEXTROSE
     Dosage: HEPARIN BASED PURGE SOLUTION IN A 10% DEXTROSE SOLUTION, IMPELLA DAY 1
     Route: 065
  4. HEPARIN [Suspect]
     Active Substance: HEPARIN SODIUM
     Indication: CARDIAC FAILURE
     Dosage: HEPARIN (U/KG/H): 12?15
     Route: 065
  5. HEPARIN [Suspect]
     Active Substance: HEPARIN SODIUM
     Dosage: HEPARIN (U/KG/H): 12?15
     Route: 065
  6. EPTIFIBATIDE. [Concomitant]
     Active Substance: EPTIFIBATIDE
     Indication: CARDIAC FAILURE
     Route: 065
  7. HEPARIN [Suspect]
     Active Substance: HEPARIN SODIUM
     Dosage: HEPARIN BASED PURGE SOLUTION IN A 10% DEXTROSE SOLUTION
     Route: 065

REACTIONS (4)
  - Haemorrhage [Recovering/Resolving]
  - Platelet count decreased [Recovering/Resolving]
  - Heparin-induced thrombocytopenia [Recovering/Resolving]
  - Haemoglobin decreased [Recovering/Resolving]
